FAERS Safety Report 25090129 (Version 1)
Quarter: 2025Q1

REPORT INFORMATION
  Report Type: Spontaneous
  Country: US (occurrence: None)
  Receive Date: 20250317
  Receipt Date: 20250317
  Transmission Date: 20250408
  Serious: Yes (Hospitalization)
  Sender: FDA-CTU
  Company Number: None

PATIENT
  Age: 36 Year
  Sex: Female

DRUGS (2)
  1. TAVNEOS [Suspect]
     Active Substance: AVACOPAN
     Dosage: FREQUENCY : TWICE A DAY;?
     Route: 048
     Dates: start: 20240326
  2. TAVNEOS [Concomitant]
     Active Substance: AVACOPAN
     Dates: start: 20240326

REACTIONS (5)
  - COVID-19 [None]
  - Influenza A virus test positive [None]
  - Acute kidney injury [None]
  - Bronchoplasty [None]
  - Cryotherapy [None]

NARRATIVE: CASE EVENT DATE: 20250317
